APPROVED DRUG PRODUCT: NORGESTIMATE AND ETHINYL ESTRADIOL
Active Ingredient: ETHINYL ESTRADIOL; NORGESTIMATE
Strength: 0.035MG;0.25MG
Dosage Form/Route: TABLET;ORAL-28
Application: A203865 | Product #001
Applicant: NAARI PTE LTD
Approved: Oct 27, 2015 | RLD: No | RS: No | Type: DISCN